FAERS Safety Report 16087058 (Version 1)
Quarter: 2019Q1

REPORT INFORMATION
  Report Type: Report from Study
  Country: None (occurrence: US)
  Receive Date: 20190319
  Receipt Date: 20190319
  Transmission Date: 20190418
  Serious: Yes (Other)
  Sender: FDA-Public Use
  Company Number: US-ABBVIE-19K-163-2701343-00

PATIENT
  Sex: Female

DRUGS (1)
  1. HUMIRA [Suspect]
     Active Substance: ADALIMUMAB
     Indication: PSORIATIC ARTHROPATHY
     Route: 058

REACTIONS (14)
  - Insomnia [Recovering/Resolving]
  - Rash erythematous [Unknown]
  - Product use complaint [Unknown]
  - Skin lesion [Unknown]
  - Burns third degree [Not Recovered/Not Resolved]
  - Sleep apnoea syndrome [Recovering/Resolving]
  - Hiatus hernia [Unknown]
  - Carpal tunnel syndrome [Not Recovered/Not Resolved]
  - Injection site pain [Recovered/Resolved]
  - Nasal valve collapse [Recovering/Resolving]
  - Hypertrophy [Not Recovered/Not Resolved]
  - Nasal injury [Recovering/Resolving]
  - Influenza [Recovering/Resolving]
  - Accident [Unknown]
